FAERS Safety Report 21190924 (Version 1)
Quarter: 2022Q3

REPORT INFORMATION
  Report Type: Spontaneous
  Country: US (occurrence: US)
  Receive Date: 20220809
  Receipt Date: 20220809
  Transmission Date: 20221027
  Serious: Yes (Life-Threatening, Other)
  Sender: FDA-Public Use
  Company Number: US-PFIZER INC-PV202200036904

PATIENT
  Age: 71 Year
  Sex: Female

DRUGS (2)
  1. FENTANYL CITRATE [Suspect]
     Active Substance: FENTANYL CITRATE
     Dosage: UNK
  2. MIDAZOLAM [Concomitant]
     Active Substance: MIDAZOLAM
     Dosage: UNK

REACTIONS (1)
  - Acute chest syndrome [Recovering/Resolving]
